FAERS Safety Report 9406297 (Version 1)
Quarter: 2013Q3

REPORT INFORMATION
  Report Type: Report from Study
  Country: DE (occurrence: DE)
  Receive Date: 20130717
  Receipt Date: 20130717
  Transmission Date: 20140515
  Serious: Yes (Hospitalization)
  Sender: FDA-Public Use
  Company Number: DE-ABBOTT-13P-062-1117495-00

PATIENT
  Age: 44 Year
  Sex: Male
  Weight: 90 kg

DRUGS (2)
  1. HUMIRA [Suspect]
     Indication: CROHN^S DISEASE
     Route: 058
     Dates: start: 20120126, end: 20130128
  2. PREDNISOLONE [Concomitant]
     Indication: CROHN^S DISEASE
     Dosage: 10-7 MG DAILY
     Dates: end: 2013

REACTIONS (2)
  - Intestinal fistula [Recovered/Resolved]
  - Abdominal lymphadenopathy [Recovered/Resolved]
